FAERS Safety Report 5507134-9 (Version None)
Quarter: 2007Q4

REPORT INFORMATION
  Report Type: 
  Country: None (occurrence: None)
  Receive Date: 20071105
  Receipt Date: 20071026
  Transmission Date: 20080405
  Serious: Yes (Hospitalization)
  Sender: FDA-Public Use
  Company Number: PHBS2007ZA17895

PATIENT
  Age: 60 Year
  Sex: Male

DRUGS (1)
  1. LEPONEX [Suspect]
     Indication: ACCIDENTAL EXPOSURE
     Dosage: 200 MG, ONCE/SINGLE

REACTIONS (3)
  - ACCIDENTAL EXPOSURE [None]
  - SALIVARY HYPERSECRETION [None]
  - SOMNOLENCE [None]
